FAERS Safety Report 7295393-4 (Version None)
Quarter: 2011Q1

REPORT INFORMATION
  Report Type: 
  Country: None (occurrence: None)
  Receive Date: 20110216
  Receipt Date: 20110104
  Transmission Date: 20110831
  Serious: No
  Sender: FDA-Public Use
  Company Number: US-ABBOTT-11P-163-0695227-00

PATIENT
  Sex: Female
  Weight: 58.112 kg

DRUGS (4)
  1. BENICAR HCT [Concomitant]
     Indication: PRODUCT USED FOR UNKNOWN INDICATION
     Dosage: 40/25MG
     Route: 048
  2. ASPIRIN [Concomitant]
     Indication: PRODUCT USED FOR UNKNOWN INDICATION
     Route: 048
  3. SIMCOR [Suspect]
     Indication: DYSLIPIDAEMIA
     Dosage: DAILY AT BEDTIME
     Route: 048
     Dates: start: 20101216
  4. NORVASC [Concomitant]
     Indication: PRODUCT USED FOR UNKNOWN INDICATION
     Route: 048

REACTIONS (3)
  - PRURITUS [None]
  - FEELING HOT [None]
  - FLUSHING [None]
